FAERS Safety Report 11709113 (Version 1)
Quarter: 2015Q4

REPORT INFORMATION
  Report Type: Spontaneous
  Country: US (occurrence: US)
  Receive Date: 20151104
  Receipt Date: 20151104
  Transmission Date: 20160304
  Serious: No
  Sender: FDA-Public Use
  Company Number: US-ELI_LILLY_AND_COMPANY-US201107001653

PATIENT
  Age: 60 Year
  Sex: Female

DRUGS (3)
  1. FORTEO [Suspect]
     Active Substance: TERIPARATIDE
     Dosage: 20 UG, QD
     Dates: end: 20110819
  2. ATIVAN [Concomitant]
     Active Substance: LORAZEPAM
     Indication: VERTIGO POSITIONAL
  3. FORTEO [Suspect]
     Active Substance: TERIPARATIDE
     Indication: OSTEOPOROSIS
     Dosage: 20 UG, QD
     Route: 065
     Dates: start: 20110630

REACTIONS (19)
  - Fatigue [Unknown]
  - Blood pressure decreased [Unknown]
  - Asthenia [Recovered/Resolved]
  - Dizziness [Recovering/Resolving]
  - Injection site pain [Unknown]
  - Vertigo positional [Not Recovered/Not Resolved]
  - Ear discomfort [Unknown]
  - Constipation [Unknown]
  - Alopecia [Unknown]
  - Headache [Unknown]
  - Sinus headache [Recovered/Resolved]
  - Heart rate increased [Recovering/Resolving]
  - Nervousness [Unknown]
  - Ear congestion [Unknown]
  - Ocular discomfort [Unknown]
  - Feeling abnormal [Unknown]
  - Ear pain [Unknown]
  - Tinnitus [Unknown]
  - Injection site bruising [Unknown]

NARRATIVE: CASE EVENT DATE: 201107
